FAERS Safety Report 4946163-0 (Version None)
Quarter: 2006Q1

REPORT INFORMATION
  Report Type: 
  Country: None (occurrence: None)
  Receive Date: 20060118
  Receipt Date: 20050506
  Transmission Date: 20060701
  Serious: Yes (Other)
  Sender: FDA-Public Use
  Company Number: BDI-007165

PATIENT
  Age: 37 Year
  Sex: Female
  Weight: 68 kg

DRUGS (2)
  1. PROHANCE [Suspect]
     Indication: MIGRAINE
     Dosage: 15 ML, ONCE; IV
     Route: 042
     Dates: start: 20050505, end: 20050505
  2. PROHANCE [Suspect]
     Indication: NUCLEAR MAGNETIC RESONANCE IMAGING BRAIN
     Dosage: 15 ML, ONCE; IV
     Route: 042
     Dates: start: 20050505, end: 20050505

REACTIONS (3)
  - FACE OEDEMA [None]
  - PHARYNGEAL OEDEMA [None]
  - THROAT TIGHTNESS [None]
